FAERS Safety Report 23215057 (Version 2)
Quarter: 2024Q1

REPORT INFORMATION
  Report Type: Spontaneous
  Country: US (occurrence: US)
  Receive Date: 20231122
  Receipt Date: 20240101
  Transmission Date: 20240410
  Serious: Yes (Other)
  Sender: FDA-Public Use
  Company Number: US-MLMSERVICE-20231108-4647854-1

PATIENT
  Age: 47 Year
  Sex: Female

DRUGS (6)
  1. TESTOSTERONE [Suspect]
     Active Substance: TESTOSTERONE
     Indication: Hormone replacement therapy
     Dosage: 450 MILLIGRAM (EACH PELLET IS 75 MG OF TESTOSTERONE)
     Route: 058
     Dates: start: 20211019
  2. TESTOSTERONE [Suspect]
     Active Substance: TESTOSTERONE
     Dosage: 675 MILLIGRAM (EACH PELLET IS 75 MG OF TESTOSTERONE)
     Route: 058
     Dates: start: 20220104
  3. TESTOSTERONE [Suspect]
     Active Substance: TESTOSTERONE
     Dosage: 750 MILLIGRAM (EACH PELLET IS 75 MG OF TESTOSTERONE)
     Route: 058
     Dates: start: 20220513
  4. BUDESONIDE [Concomitant]
     Active Substance: BUDESONIDE
     Indication: Asthma
     Dosage: UNK
     Route: 065
  5. ALBUTEROL [Concomitant]
     Active Substance: ALBUTEROL
     Indication: Asthma
     Dosage: UNK
     Route: 065
  6. ESCITALOPRAM [Concomitant]
     Active Substance: ESCITALOPRAM OXALATE
     Indication: Generalised anxiety disorder
     Dosage: UNK
     Route: 065

REACTIONS (3)
  - Polycythaemia [Unknown]
  - Injection site pain [Unknown]
  - Off label use [Unknown]
